FAERS Safety Report 8894226 (Version 1)
Quarter: 2012Q4

REPORT INFORMATION
  Report Type: 
  Country: US (occurrence: US)
  Receive Date: 20121107
  Receipt Date: 20121107
  Transmission Date: 20130627
  Serious: No
  Sender: FDA-Public Use
  Company Number: US-AMGEN-USASP2011058781

PATIENT
  Age: 82 Year
  Sex: Male
  Weight: 95.24 kg

DRUGS (8)
  1. ENBREL [Suspect]
     Indication: PSORIATIC ARTHROPATHY
     Dosage: 25 mg, 2 times/wk
     Route: 058
     Dates: start: 20040420
  2. ENBREL [Suspect]
     Indication: PSORIASIS
  3. COUMADIN                           /00014802/ [Concomitant]
     Dosage: 2 mg, UNK
  4. AVAPRO [Concomitant]
     Dosage: 150 mg, UNK
  5. OMEPRAZOLE [Concomitant]
     Dosage: 20 mg, UNK
  6. PROPRANOLOL [Concomitant]
     Dosage: 10 mg, UNK
  7. TOPROL [Concomitant]
     Dosage: 25 mg, UNK
  8. CRESTOR [Concomitant]
     Dosage: 5 mg, UNK

REACTIONS (4)
  - Psoriatic arthropathy [Not Recovered/Not Resolved]
  - Drug ineffective [Recovered/Resolved]
  - Nasopharyngitis [Unknown]
  - Psoriasis [Not Recovered/Not Resolved]
